FAERS Safety Report 5745252-0 (Version None)
Quarter: 2008Q2

REPORT INFORMATION
  Report Type: 
  Country: None (occurrence: None)
  Receive Date: 20080521
  Receipt Date: 20080516
  Transmission Date: 20081010
  Serious: Yes (Other)
  Sender: FDA-Public Use
  Company Number: D0056759A

PATIENT
  Sex: Female

DRUGS (10)
  1. VIANI FORTE [Suspect]
     Indication: ASTHMA
     Route: 065
  2. VIANI [Suspect]
  3. ANTIBIOTIC [Suspect]
     Route: 065
  4. DECORTIN [Suspect]
     Dosage: 50MG PER DAY
     Route: 065
  5. SPIRIVA [Suspect]
     Route: 065
  6. THEOPHYLLINE [Suspect]
     Dosage: 400MG PER DAY
     Route: 065
  7. LEVOTHYROXINE SODIUM [Suspect]
     Dosage: 162.5MG PER DAY
     Route: 065
  8. AERIUS [Concomitant]
  9. HYDROCHLOROTHIAZIDE [Concomitant]
     Dosage: .5TAB IN THE MORNING
  10. OMEPRAZOLE [Concomitant]

REACTIONS (5)
  - CUSHING'S SYNDROME [None]
  - CUSHINGOID [None]
  - DISBACTERIOSIS [None]
  - GASTROINTESTINAL INFECTION [None]
  - LOCAL SWELLING [None]
